FAERS Safety Report 4581033-1 (Version None)
Quarter: 2005Q1

REPORT INFORMATION
  Report Type: 
  Country: None (occurrence: None)
  Receive Date: 20050214
  Receipt Date: 20040720
  Transmission Date: 20050727
  Serious: No
  Sender: FDA-Public Use
  Company Number: US-GLAXOSMITHKLINE-A0519058A

PATIENT
  Age: 26 Year
  Sex: Female

DRUGS (2)
  1. LAMICTAL [Suspect]
     Indication: DEPRESSION
     Dosage: 50MG AT NIGHT
     Route: 048
     Dates: start: 20040601, end: 20040720
  2. SEROQUEL [Concomitant]

REACTIONS (2)
  - BLISTER [None]
  - HAND-FOOT-AND-MOUTH DISEASE [None]
